FAERS Safety Report 17200957 (Version 1)
Quarter: 2019Q4

REPORT INFORMATION
  Report Type: Spontaneous
  Country: DE (occurrence: DE)
  Receive Date: 20191226
  Receipt Date: 20191226
  Transmission Date: 20200122
  Serious: Yes (Other)
  Sender: FDA-Public Use
  Company Number: NVSC2019DE077329

PATIENT
  Age: 57 Year

DRUGS (2)
  1. BEVACIZUMAB. [Suspect]
     Active Substance: BEVACIZUMAB
     Indication: RADIATION NECROSIS
     Dosage: 10 DF
     Route: 041
  2. DEXAMETHASONE. [Suspect]
     Active Substance: DEXAMETHASONE
     Indication: RADIATION NECROSIS
     Dosage: 16 MG
     Route: 065

REACTIONS (3)
  - Adrenal insufficiency [Unknown]
  - Product use in unapproved indication [Unknown]
  - Radiation necrosis [Unknown]
